FAERS Safety Report 6867001-5 (Version None)
Quarter: 2010Q3

REPORT INFORMATION
  Report Type: 
  Country: None (occurrence: None)
  Receive Date: 20100722
  Receipt Date: 20100712
  Transmission Date: 20110219
  Serious: Yes (Life-Threatening)
  Sender: FDA-Public Use
  Company Number: FR-ROCHE-715303

PATIENT
  Sex: Male
  Weight: 90 kg

DRUGS (2)
  1. BEVACIZUMAB [Suspect]
     Dosage: LAST DOSE PRIOR TO SAE: 19 APRIL 2010.
     Route: 042
     Dates: start: 20100309
  2. FLUOROURACIL [Suspect]
     Dosage: CONTINUOSLY SINCE MONDAY TO FRIDAY. LAST DOSE PRIOR TO SAE: 27 APRIL 2010.
     Route: 042
     Dates: start: 20100322

REACTIONS (1)
  - SEPTIC SHOCK [None]
